FAERS Safety Report 9439596 (Version 2)
Quarter: 2013Q4

REPORT INFORMATION
  Report Type: Report from Study
  Country: JP (occurrence: JP)
  Receive Date: 20130805
  Receipt Date: 20131028
  Transmission Date: 20140711
  Serious: Yes (Hospitalization)
  Sender: FDA-Public Use
  Company Number: JP-MERCK-1307JPN016727

PATIENT
  Age: 69 Year
  Sex: Male
  Weight: 52.85 kg

DRUGS (14)
  1. GLACTIV [Suspect]
     Indication: TYPE 2 DIABETES MELLITUS
     Dosage: 25 MG, QD, STRENGTH-12.5, 25, 50 AND 100MG
     Route: 048
     Dates: start: 20120609, end: 20130405
  2. NOVORAPID [Concomitant]
  3. BASEN [Concomitant]
  4. NOVOLIN N [Concomitant]
  5. FEBURIC [Concomitant]
     Dosage: UNK
     Dates: end: 20130430
  6. TAKEPRON [Concomitant]
  7. BUFFERIN [Concomitant]
  8. COVERSYL (PERINDOPRIL ERBUMINE) [Concomitant]
     Dosage: UNK
     Dates: end: 20130322
  9. PANALDINE [Concomitant]
  10. ITOROL [Concomitant]
  11. LIPITOR [Concomitant]
     Dosage: UNK
     Dates: end: 20130322
  12. PRORENAL [Concomitant]
  13. ANPLAG [Concomitant]
  14. LASIX (FUROSEMIDE) [Concomitant]
     Dosage: UNK
     Dates: end: 20130110

REACTIONS (2)
  - Pneumonia [Recovered/Resolved]
  - Renal impairment [Not Recovered/Not Resolved]
